FAERS Safety Report 5804577-0 (Version None)
Quarter: 2008Q3

REPORT INFORMATION
  Report Type: 
  Country: None (occurrence: None)
  Receive Date: 20080707
  Receipt Date: 20080707
  Transmission Date: 20090109
  Serious: Yes (Death, Life-Threatening, Hospitalization, Other)
  Sender: FDA-Public Use
  Company Number: None

PATIENT
  Age: 23 Year
  Sex: Male
  Weight: 68.0396 kg

DRUGS (4)
  1. DIPRIVAN [Suspect]
     Indication: GENERAL ANAESTHESIA
     Dosage: GENERAL
     Dates: start: 20050712
  2. FENTANYL [Suspect]
     Indication: PAIN
     Dosage: EPIDURAL
     Route: 008
     Dates: start: 20050712
  3. INSULIN [Concomitant]
  4. MIDAZOLAM [Concomitant]

REACTIONS (8)
  - ANAPHYLACTIC REACTION [None]
  - CEREBROVASCULAR ACCIDENT [None]
  - COMA [None]
  - CONTRAINDICATION TO MEDICAL TREATMENT [None]
  - GENERALISED OEDEMA [None]
  - RESPIRATORY ARREST [None]
  - RESPIRATORY FAILURE [None]
  - TRANSIENT ISCHAEMIC ATTACK [None]
